FAERS Safety Report 6156288-2 (Version None)
Quarter: 2009Q2

REPORT INFORMATION
  Report Type: 
  Country: None (occurrence: None)
  Receive Date: 20090415
  Receipt Date: 20090408
  Transmission Date: 20091009
  Serious: Yes (Hospitalization, Other)
  Sender: FDA-Public Use
  Company Number: US-ABBOTT-09P-163-0567520-00

PATIENT
  Sex: Female
  Weight: 67.192 kg

DRUGS (7)
  1. HUMIRA [Suspect]
     Indication: CROHN'S DISEASE
     Route: 058
     Dates: start: 20080508, end: 20081101
  2. PENTASA [Concomitant]
     Indication: CROHN'S DISEASE
  3. FLAGYL [Concomitant]
     Indication: CROHN'S DISEASE
  4. LEXAPRO [Concomitant]
     Indication: DEPRESSION
  5. UNKNOWN STEROIDS [Concomitant]
     Indication: DERMATITIS
  6. PEPCID [Concomitant]
     Indication: CROHN'S DISEASE
  7. ERYTHROMYCIN [Concomitant]
     Indication: DERMATITIS

REACTIONS (3)
  - CHEST PAIN [None]
  - PULMONARY EMBOLISM [None]
  - WHITE BLOOD CELL COUNT INCREASED [None]
